FAERS Safety Report 17185890 (Version 1)
Quarter: 2019Q4

REPORT INFORMATION
  Report Type: Report from Study
  Country: US (occurrence: US)
  Receive Date: 20191220
  Receipt Date: 20191220
  Transmission Date: 20200122
  Serious: Yes (Hospitalization)
  Sender: FDA-Public Use
  Company Number: US-TAIHO ONCOLOGY  INC-EU-2019-04206

PATIENT
  Sex: Male
  Weight: 69.01 kg

DRUGS (1)
  1. LONSURF [Suspect]
     Active Substance: TIPIRACIL HYDROCHLORIDE\TRIFLURIDINE
     Indication: OESOPHAGEAL CARCINOMA
     Dosage: CYCLE 1-7?LONSURF 20MG + 15MG
     Dates: start: 20190406

REACTIONS (6)
  - Abnormal behaviour [Unknown]
  - Device breakage [Unknown]
  - Malaise [Unknown]
  - Intentional product use issue [Unknown]
  - Haemorrhage [Unknown]
  - Incoherent [Unknown]

NARRATIVE: CASE EVENT DATE: 2019
